FAERS Safety Report 15674540 (Version 2)
Quarter: 2018Q4

REPORT INFORMATION
  Report Type: Spontaneous
  Country: US (occurrence: US)
  Receive Date: 20181130
  Receipt Date: 20181205
  Transmission Date: 20190205
  Serious: Yes (Death, Other)
  Sender: FDA-Public Use
  Company Number: US-CELGENEUS-USA-20181108104

PATIENT
  Sex: Female

DRUGS (1)
  1. REVLIMID [Suspect]
     Active Substance: LENALIDOMIDE
     Indication: MYELODYSPLASTIC SYNDROME
     Dosage: 5 MILLIGRAM
     Route: 048
     Dates: start: 20181013

REACTIONS (4)
  - Death [Fatal]
  - Leukaemia [Unknown]
  - Lung neoplasm malignant [Unknown]
  - Blood disorder [Unknown]

NARRATIVE: CASE EVENT DATE: 2018
